FAERS Safety Report 4744949-9 (Version None)
Quarter: 2005Q3

REPORT INFORMATION
  Report Type: 
  Country: None (occurrence: None)
  Receive Date: 20050811
  Receipt Date: 20050803
  Transmission Date: 20060218
  Serious: Yes (Hospitalization, Other)
  Sender: FDA-Public Use
  Company Number: HQWYE704804AUG05

PATIENT
  Age: 65 Year
  Sex: Male

DRUGS (2)
  1. MYLOTARG [Suspect]
     Indication: ACUTE MYELOID LEUKAEMIA
     Dosage: 20 MG 1X PER 1 DAY, INTRAVENOUS
     Route: 042
     Dates: start: 20050628, end: 20050628
  2. MYLOTARG [Suspect]
     Indication: ACUTE MYELOID LEUKAEMIA
     Dosage: 20 MG 1X PER 1 DAY, INTRAVENOUS
     Route: 042
     Dates: start: 20050714, end: 20050714

REACTIONS (3)
  - ENDOCARDITIS [None]
  - FEBRILE NEUTROPENIA [None]
  - WHITE BLOOD CELL COUNT INCREASED [None]
